FAERS Safety Report 6784079-8 (Version None)
Quarter: 2010Q2

REPORT INFORMATION
  Report Type: 
  Country: None (occurrence: None)
  Receive Date: 20100618
  Receipt Date: 20100607
  Transmission Date: 20101027
  Serious: No
  Sender: FDA-Public Use
  Company Number: 2010050071

PATIENT
  Age: 62 Year
  Sex: Female

DRUGS (3)
  1. ONSOLIS [Suspect]
     Dosage: BU
     Route: 002
  2. LORTAB [Concomitant]
  3. MORPHINE [Concomitant]

REACTIONS (1)
  - INTERCEPTED DRUG DISPENSING ERROR [None]
